FAERS Safety Report 9912258 (Version 4)
Quarter: 2017Q4

REPORT INFORMATION
  Report Type: Spontaneous
  Country: IL (occurrence: IL)
  Receive Date: 20140220
  Receipt Date: 20171211
  Transmission Date: 20180321
  Serious: Yes (Hospitalization, Other)
  Sender: FDA-Public Use
  Company Number: IL-ROCHE-1351999

PATIENT
  Age: 84 Year
  Sex: Male

DRUGS (10)
  1. LUCENTIS [Suspect]
     Active Substance: RANIBIZUMAB
     Dosage: IN RIGHT EYE
     Route: 031
  2. EYLEA [Concomitant]
     Active Substance: AFLIBERCEPT
     Indication: PRODUCT USED FOR UNKNOWN INDICATION
     Dosage: UNK
     Route: 065
  3. LUCENTIS [Suspect]
     Active Substance: RANIBIZUMAB
     Dosage: IN BOTH EYES
     Route: 031
     Dates: start: 201401
  4. LUCENTIS [Suspect]
     Active Substance: RANIBIZUMAB
     Route: 031
     Dates: start: 20140209
  5. LUCENTIS [Suspect]
     Active Substance: RANIBIZUMAB
     Route: 031
     Dates: start: 201310
  6. LUCENTIS [Suspect]
     Active Substance: RANIBIZUMAB
     Dosage: IN LEFT EYE
     Route: 031
     Dates: start: 201509
  7. ASPIRIN. [Concomitant]
     Active Substance: ASPIRIN
  8. LUCENTIS [Suspect]
     Active Substance: RANIBIZUMAB
     Route: 031
     Dates: start: 201309
  9. LUCENTIS [Suspect]
     Active Substance: RANIBIZUMAB
     Indication: NEOVASCULAR AGE-RELATED MACULAR DEGENERATION
     Route: 031
     Dates: start: 201308
  10. LUCENTIS [Suspect]
     Active Substance: RANIBIZUMAB
     Route: 031
     Dates: start: 201508

REACTIONS (14)
  - Pyrexia [Unknown]
  - Acute febrile neutrophilic dermatosis [Unknown]
  - Inappropriate schedule of drug administration [Unknown]
  - Erythema [Unknown]
  - Subacute cutaneous lupus erythematosus [Unknown]
  - Drug eruption [Unknown]
  - Erythema [Unknown]
  - Pneumonia mycoplasmal [Unknown]
  - Choroidal neovascularisation [Unknown]
  - Herpes simplex [Unknown]
  - Dermatitis bullous [Unknown]
  - Subcutaneous haematoma [Unknown]
  - Conjunctivitis [Unknown]
  - Pruritus [Unknown]

NARRATIVE: CASE EVENT DATE: 2014
